FAERS Safety Report 15155643 (Version 14)
Quarter: 2019Q3

REPORT INFORMATION
  Report Type: Spontaneous
  Country: JP (occurrence: JP)
  Receive Date: 20180717
  Receipt Date: 20190709
  Transmission Date: 20191004
  Serious: Yes (Hospitalization, Other)
  Sender: FDA-Public Use
  Company Number: JP-PFIZER INC-2018285257

PATIENT
  Sex: Male

DRUGS (29)
  1. DIOVAN [Suspect]
     Active Substance: VALSARTAN
     Dosage: 80 MG, 2X/DAY
     Route: 048
  2. BELSOMRA [Concomitant]
     Active Substance: SUVOREXANT
     Dosage: UNK
  3. AKINETON [Suspect]
     Active Substance: BIPERIDEN HYDROCHLORIDE
     Indication: FEELING ABNORMAL
     Dosage: 2 MG, UNK
     Route: 048
  4. AKINETON [Suspect]
     Active Substance: BIPERIDEN HYDROCHLORIDE
     Dosage: 6 MG, DAILY
     Route: 048
  5. METGLUCO [Suspect]
     Active Substance: METFORMIN HYDROCHLORIDE
     Dosage: 1000 MG, UNK
     Route: 048
     Dates: start: 201905
  6. RISPERDAL [Suspect]
     Active Substance: RISPERIDONE
     Dosage: 8 MG/DAY
  7. LOXONIN [Suspect]
     Active Substance: LOXOPROFEN SODIUM
     Dosage: UNK
     Route: 048
  8. LITHIUM CARBONATE. [Concomitant]
     Active Substance: LITHIUM CARBONATE
     Indication: PSYCHOTHERAPY
     Dosage: UNK
  9. WYPAX [Concomitant]
     Active Substance: LORAZEPAM
     Dosage: UNK
  10. METGLUCO [Suspect]
     Active Substance: METFORMIN HYDROCHLORIDE
     Indication: TYPE 2 DIABETES MELLITUS
     Dosage: 2000 MG, DAILY (2000 MG, QD; ORAL)
     Route: 048
     Dates: end: 201905
  11. RISPERDAL [Suspect]
     Active Substance: RISPERIDONE
     Dosage: 4 MG, UNK
     Route: 065
  12. SILECE [Concomitant]
     Active Substance: FLUNITRAZEPAM
     Dosage: UNK
  13. LANDSEN [Suspect]
     Active Substance: CLONAZEPAM
     Dosage: 8 DF,0.5MG B.I.D (MORNING AND EVENING)
     Dates: start: 20190307
  14. RISPERDAL [Suspect]
     Active Substance: RISPERIDONE
     Dosage: UNK
     Route: 065
  15. AMLODIN [Suspect]
     Active Substance: AMLODIPINE BESYLATE
     Indication: HYPERTENSION
     Dosage: 10 MG, DAILY
     Route: 048
  16. AKINETON [Suspect]
     Active Substance: BIPERIDEN HYDROCHLORIDE
     Indication: MOOD ALTERED
     Dosage: 2 MG, 2X/DAY
     Route: 048
  17. LANDSEN [Suspect]
     Active Substance: CLONAZEPAM
     Indication: AKATHISIA
     Dosage: 0.5 MG, 1X/DAY (BEFORE BED)
     Route: 048
  18. LANDSEN [Suspect]
     Active Substance: CLONAZEPAM
     Indication: AFFECTIVE DISORDER
     Dosage: UNK, 2X/DAY (MORNING AND BED TIME)
     Dates: start: 201812
  19. LANDSEN [Suspect]
     Active Substance: CLONAZEPAM
     Indication: PSYCHOTHERAPY
     Dosage: 1 MG, 1X/DAY (SKIPPING THE BEDTIME DOSE)
     Route: 048
  20. METGLUCO [Suspect]
     Active Substance: METFORMIN HYDROCHLORIDE
     Dosage: 1500 MG, DAILY
     Route: 048
  21. RISPERDAL [Suspect]
     Active Substance: RISPERIDONE
     Dosage: 4 MG, 2X/DAY
     Route: 065
     Dates: start: 20170817
  22. EQUA [Suspect]
     Active Substance: VILDAGLIPTIN
     Dosage: 50 MG, 2X/DAY
     Route: 048
  23. NEXIUM [Concomitant]
     Active Substance: ESOMEPRAZOLE MAGNESIUM
     Dosage: UNK
  24. LANDSEN [Suspect]
     Active Substance: CLONAZEPAM
     Indication: PANIC DISORDER
     Dosage: 4 MG, 1X/DAY (HS)
     Route: 048
  25. MUCOSTA [Concomitant]
     Active Substance: REBAMIPIDE
     Dosage: UNK
  26. RIVOTRIL [Concomitant]
     Active Substance: CLONAZEPAM
     Indication: PSYCHOTHERAPY
     Dosage: UNK
     Route: 048
  27. SEDIEL [Suspect]
     Active Substance: TANDOSPIRONE
     Dosage: 60 MG, DAILY
     Route: 048
  28. RISPERDAL [Suspect]
     Active Substance: RISPERIDONE
     Dosage: 16 MG, UNK
     Route: 065
     Dates: start: 20180221
  29. ACTOS [Concomitant]
     Active Substance: PIOGLITAZONE HYDROCHLORIDE
     Dosage: UNK

REACTIONS (23)
  - Dependence [Unknown]
  - Abdominal discomfort [Unknown]
  - Hunger [Not Recovered/Not Resolved]
  - Abnormal behaviour [Recovered/Resolved]
  - Anxiety [Unknown]
  - Disturbance in attention [Unknown]
  - Akathisia [Recovered/Resolved]
  - Somnolence [Unknown]
  - Headache [Recovered/Resolved]
  - Physical deconditioning [Not Recovered/Not Resolved]
  - Amnesia [Unknown]
  - Intentional overdose [Unknown]
  - Dizziness [Unknown]
  - Weight increased [Not Recovered/Not Resolved]
  - Salivary hypersecretion [Unknown]
  - Arthralgia [Recovered/Resolved]
  - Product use issue [Unknown]
  - Glycosylated haemoglobin increased [Unknown]
  - Blood pressure increased [Recovered/Resolved]
  - Ulcer haemorrhage [Recovered/Resolved]
  - Nausea [Unknown]
  - Dry mouth [Not Recovered/Not Resolved]
  - Product dose omission [Unknown]

NARRATIVE: CASE EVENT DATE: 20151005
